FAERS Safety Report 26163075 (Version 1)
Quarter: 2025Q4

REPORT INFORMATION
  Report Type: Spontaneous
  Country: US (occurrence: None)
  Receive Date: 20251215
  Receipt Date: 20251215
  Transmission Date: 20260119
  Serious: Yes (Other)
  Sender: FDA-CTU
  Company Number: None

PATIENT
  Age: 49 Year
  Sex: Male

DRUGS (1)
  1. BRIMONIDINE [Suspect]
     Active Substance: BRIMONIDINE TARTRATE
     Indication: Borderline glaucoma
     Dosage: 1 GTT BID OPHTHALMIC
     Route: 047
     Dates: start: 20250616, end: 20251205

REACTIONS (2)
  - Eye irritation [None]
  - Reaction to preservatives [None]

NARRATIVE: CASE EVENT DATE: 20250512
